FAERS Safety Report 7403065-8 (Version None)
Quarter: 2011Q2

REPORT INFORMATION
  Report Type: 
  Country: None (occurrence: None)
  Receive Date: 20110408
  Receipt Date: 20110401
  Transmission Date: 20111010
  Serious: Yes (Death)
  Sender: FDA-Public Use
  Company Number: FR-JNJFOC-20110400121

PATIENT
  Sex: Male

DRUGS (12)
  1. RIVOTRIL [Suspect]
     Indication: AGITATION
     Route: 048
  2. RIVOTRIL [Suspect]
     Route: 048
  3. TERCIAN [Suspect]
     Route: 048
  4. LEPTICUR [Suspect]
     Indication: PARKINSONISM
     Route: 030
  5. LASIX [Concomitant]
     Indication: HYPERTENSION
     Route: 065
  6. PERINDOPRIL ERBUMINE [Concomitant]
     Indication: HYPERTENSION
     Route: 065
  7. PARIET [Concomitant]
     Indication: ULCER
     Route: 065
  8. HALDOL [Suspect]
     Indication: AGITATION
     Route: 030
  9. ABILIFY [Suspect]
     Indication: SCHIZOAFFECTIVE DISORDER
     Route: 048
  10. TERCIAN [Suspect]
     Indication: AGITATION
     Route: 030
  11. TERCIAN [Suspect]
     Route: 048
  12. TERALITHE [Suspect]
     Indication: SCHIZOPHRENIA
     Route: 048

REACTIONS (11)
  - CARDIO-RESPIRATORY ARREST [None]
  - BRONCHIAL DISORDER [None]
  - NEUTROPHIL COUNT INCREASED [None]
  - AGGRESSION [None]
  - PYREXIA [None]
  - COUGH [None]
  - PERSECUTORY DELUSION [None]
  - AGITATION [None]
  - ANTIPSYCHOTIC DRUG LEVEL BELOW THERAPEUTIC [None]
  - DRUG RESISTANCE [None]
  - SEDATION [None]
